FAERS Safety Report 14738582 (Version 6)
Quarter: 2020Q3

REPORT INFORMATION
  Report Type: Spontaneous
  Country: RO (occurrence: RO)
  Receive Date: 20180409
  Receipt Date: 20200727
  Transmission Date: 20201102
  Serious: Yes (Other)
  Sender: FDA-Public Use
  Company Number: RO-PFIZER INC-2018143545

PATIENT
  Sex: Male

DRUGS (7)
  1. CAVINTON [Suspect]
     Active Substance: VINPOCETINE
     Dosage: UNK
     Route: 065
  2. ELIQUIS [Suspect]
     Active Substance: APIXABAN
     Dosage: 5 MG, UNK
     Route: 065
  3. SORTIS [Suspect]
     Active Substance: ATORVASTATIN
     Dosage: 40 MG, UNK
     Route: 065
  4. ASPENTER [Suspect]
     Active Substance: ASPIRIN
     Dosage: UNK
     Route: 065
  5. FUROSEMIDE. [Suspect]
     Active Substance: FUROSEMIDE
     Dosage: UNK
     Route: 065
  6. MILURIT [Suspect]
     Active Substance: ALLOPURINOL
     Dosage: 100 MG, UNK
     Route: 065
  7. ATACAND [Suspect]
     Active Substance: CANDESARTAN CILEXETIL
     Dosage: 16 MG, UNK
     Route: 065

REACTIONS (4)
  - Dizziness [Unknown]
  - Blood pressure increased [Unknown]
  - Hyperhidrosis [Unknown]
  - Loss of personal independence in daily activities [Unknown]
